FAERS Safety Report 5023390-8 (Version None)
Quarter: 2006Q2

REPORT INFORMATION
  Report Type: 
  Country: None (occurrence: None)
  Receive Date: 20060428
  Receipt Date: 20050818
  Transmission Date: 20061013
  Serious: Yes (Hospitalization, Other)
  Sender: FDA-Public Use
  Company Number: 27275

PATIENT
  Age: 63 Year
  Sex: Male

DRUGS (3)
  1. ALDARA [Suspect]
     Indication: HYPERKERATOSIS
     Dosage: 3 SACHET (1 SACHET, 3 IN 1 DAY(S)), TOPICAL
     Route: 061
     Dates: start: 20050801, end: 20050808
  2. ATENOLOL [Concomitant]
  3. LOVASTATIN [Concomitant]

REACTIONS (4)
  - BACK PAIN [None]
  - INFLUENZA LIKE ILLNESS [None]
  - PYREXIA [None]
  - RASH MACULO-PAPULAR [None]
